FAERS Safety Report 17274827 (Version 1)
Quarter: 2020Q1

REPORT INFORMATION
  Report Type: Report from Study
  Country: CA (occurrence: CA)
  Receive Date: 20200115
  Receipt Date: 20200115
  Transmission Date: 20200409
  Serious: Yes (Other)
  Sender: FDA-Public Use
  Company Number: CA-AMGEN-CANSL2019193638

PATIENT
  Age: 53 Year
  Sex: Female
  Weight: 66.21 kg

DRUGS (1)
  1. PROLIA [Suspect]
     Active Substance: DENOSUMAB
     Indication: OSTEOPOROSIS
     Dosage: 60 MILLIGRAM, Q6MO
     Route: 058
     Dates: start: 20160331, end: 20190509

REACTIONS (3)
  - Tooth disorder [Unknown]
  - Pain in jaw [Recovered/Resolved]
  - Ear disorder [Unknown]

NARRATIVE: CASE EVENT DATE: 20190706
